FAERS Safety Report 8110681-7 (Version None)
Quarter: 2012Q1

REPORT INFORMATION
  Report Type: 
  Country: None (occurrence: None)
  Receive Date: 20120201
  Receipt Date: 20120201
  Transmission Date: 20120608
  Serious: Yes (Hospitalization)
  Sender: FDA-Public Use
  Company Number: None

PATIENT
  Sex: Female
  Weight: 58.3 kg

DRUGS (3)
  1. ETOPOSIDE [Suspect]
     Dosage: 686 MG
     Dates: end: 20120130
  2. DAUNORUBICIN HCL [Suspect]
     Dosage: 222 MG
     Dates: end: 20120130
  3. CYTARABINE [Suspect]
     Dosage: 1467 MG
     Dates: end: 20120130

REACTIONS (20)
  - ORAL DISORDER [None]
  - CREATININE RENAL CLEARANCE DECREASED [None]
  - DISSEMINATED INTRAVASCULAR COAGULATION [None]
  - BLOOD POTASSIUM INCREASED [None]
  - HYPERPHOSPHATAEMIA [None]
  - CONTINUOUS HAEMODIAFILTRATION [None]
  - BLOOD BILIRUBIN INCREASED [None]
  - HYPERTENSION [None]
  - PYREXIA [None]
  - HYPERGLYCAEMIA [None]
  - HAEMATURIA [None]
  - BLOOD ALBUMIN DECREASED [None]
  - ASPARTATE AMINOTRANSFERASE INCREASED [None]
  - PULMONARY OEDEMA [None]
  - HYPOCALCAEMIA [None]
  - RESPIRATORY DISTRESS [None]
  - FLUID OVERLOAD [None]
  - PULMONARY HAEMORRHAGE [None]
  - BLOOD URIC ACID INCREASED [None]
  - TUMOUR LYSIS SYNDROME [None]
